FAERS Safety Report 15734165 (Version 1)
Quarter: 2018Q4

REPORT INFORMATION
  Report Type: Spontaneous
  Country: GB (occurrence: GB)
  Receive Date: 20181203
  Receipt Date: 20181203
  Transmission Date: 20190205
  Serious: Yes (Hospitalization)
  Sender: FDA-Public Use
  Company Number: None

PATIENT
  Age: 75 Year
  Sex: Female
  Weight: 48 kg

DRUGS (5)
  1. GENTAMICIN. [Suspect]
     Active Substance: GENTAMICIN
  2. MAGNESIUM [Concomitant]
     Active Substance: MAGNESIUM
  3. PROCLOPERAZINE [Concomitant]
  4. CIPROFLOXACIN. [Suspect]
     Active Substance: CIPROFLOXACIN
     Indication: URINARY TRACT INFECTION
  5. POMEGRANATE [Concomitant]
     Active Substance: POMEGRANATE

REACTIONS (2)
  - Vestibular disorder [None]
  - Nervous system disorder [None]

NARRATIVE: CASE EVENT DATE: 20170222
